FAERS Safety Report 6221668-3 (Version None)
Quarter: 2009Q2

REPORT INFORMATION
  Report Type: 
  Country: None (occurrence: None)
  Receive Date: 20090610
  Receipt Date: 20090608
  Transmission Date: 20091009
  Serious: Yes (Hospitalization)
  Sender: FDA-Public Use
  Company Number: PHHY2009BE22535

PATIENT

DRUGS (4)
  1. DICLOFENAC SODIUM [Suspect]
     Indication: PAIN
  2. TENOFOVIR DISOPROXIL FUMARATE [Interacting]
     Indication: HIV INFECTION
     Dosage: 300 MG
  3. LOPINAVIR AND RITONAVIR [Concomitant]
     Indication: HIV INFECTION
     Dosage: 133/33 MG
  4. LAMIVUDINE [Concomitant]
     Indication: HIV INFECTION
     Dosage: 300 MG

REACTIONS (23)
  - BLOOD CREATININE INCREASED [None]
  - BLOOD UREA INCREASED [None]
  - CONFUSIONAL STATE [None]
  - DISORIENTATION [None]
  - DRUG INTERACTION [None]
  - FANCONI SYNDROME ACQUIRED [None]
  - HYPERKALAEMIA [None]
  - INFLAMMATION [None]
  - METABOLIC ACIDOSIS [None]
  - OEDEMA [None]
  - POLYURIA [None]
  - PROTEINURIA [None]
  - RENAL DISORDER [None]
  - RENAL FAILURE ACUTE [None]
  - RENAL GLYCOSURIA [None]
  - RENAL INJURY [None]
  - RENAL TUBULAR DISORDER [None]
  - RENAL TUBULAR NECROSIS [None]
  - SOMNOLENCE [None]
  - TRAUMATIC HAEMORRHAGE [None]
  - TUBULOINTERSTITIAL NEPHRITIS [None]
  - URINE AMINO ACID LEVEL INCREASED [None]
  - URINE ANALYSIS ABNORMAL [None]
